FAERS Safety Report 25660888 (Version 1)
Quarter: 2025Q3

REPORT INFORMATION
  Report Type: Spontaneous
  Country: US (occurrence: US)
  Receive Date: 20250808
  Receipt Date: 20250808
  Transmission Date: 20251021
  Serious: Yes (Other)
  Sender: FERRING
  Company Number: US-FERRINGPH-2025FE04046

PATIENT
  Sex: Female

DRUGS (2)
  1. NOVAREL [Suspect]
     Active Substance: CHORIOGONADOTROPIN ALFA
     Indication: In vitro fertilisation
     Route: 065
  2. LUPRON [Suspect]
     Active Substance: LEUPROLIDE ACETATE
     Indication: In vitro fertilisation
     Route: 065

REACTIONS (2)
  - Blood pressure decreased [Unknown]
  - Syncope [Unknown]
